FAERS Safety Report 7499078-0 (Version None)
Quarter: 2011Q2

REPORT INFORMATION
  Report Type: 
  Country: None (occurrence: None)
  Receive Date: 20110516
  Receipt Date: 20110502
  Transmission Date: 20111010
  Serious: Yes (Other)
  Sender: FDA-Public Use
  Company Number: 030892

PATIENT
  Sex: Male
  Weight: 99.8 kg

DRUGS (1)
  1. CIMZIA [Suspect]
     Indication: CROHN'S DISEASE
     Dosage: (400 MG 1X/MONTH SUBCUTANEOUS)
     Route: 058
     Dates: start: 20100101

REACTIONS (7)
  - CONDITION AGGRAVATED [None]
  - SINUSITIS [None]
  - OROPHARYNGEAL PAIN [None]
  - PAIN [None]
  - PSORIASIS [None]
  - RASH [None]
  - MUSCLE SPASMS [None]
